FAERS Safety Report 10727033 (Version 2)
Quarter: 2015Q1

REPORT INFORMATION
  Report Type: Spontaneous
  Country: US (occurrence: US)
  Receive Date: 20150121
  Receipt Date: 20150312
  Transmission Date: 20150721
  Serious: Yes (Other)
  Sender: FDA-Public Use
  Company Number: US-UNITED THERAPEUTICS-UNT-2014-010466

PATIENT
  Sex: Female
  Weight: 81.63 kg

DRUGS (5)
  1. REMODULIN [Suspect]
     Active Substance: TREPROSTINIL
     Indication: PULMONARY ARTERIAL HYPERTENSION
     Dosage: 0.0288 ?G/KG, CONTINUING
     Route: 058
     Dates: start: 20140918
  2. REMODULIN [Suspect]
     Active Substance: TREPROSTINIL
     Dosage: 0.0535 ?G/KG, CONTINUING
     Route: 058
  3. REMODULIN [Suspect]
     Active Substance: TREPROSTINIL
     Dosage: 0.04527 ?G/KG, CONTINUING
     Route: 058
     Dates: start: 20140922
  4. ADCIRCA [Concomitant]
     Active Substance: TADALAFIL
     Indication: PRODUCT USED FOR UNKNOWN INDICATION
  5. REMODULIN [Suspect]
     Active Substance: TREPROSTINIL
     Dosage: 0.0288 ?G/KG, CONTINUING
     Route: 058
     Dates: start: 20140922

REACTIONS (7)
  - Pain in extremity [Unknown]
  - Infusion site erythema [Unknown]
  - Flushing [Unknown]
  - Diarrhoea [Not Recovered/Not Resolved]
  - Dyspepsia [Unknown]
  - Infusion site pain [Not Recovered/Not Resolved]
  - Trismus [Unknown]

NARRATIVE: CASE EVENT DATE: 2014
